FAERS Safety Report 19595463 (Version 1)
Quarter: 2021Q3

REPORT INFORMATION
  Report Type: Spontaneous
  Country: US (occurrence: US)
  Receive Date: 20210722
  Receipt Date: 20210722
  Transmission Date: 20211014
  Serious: Yes (Hospitalization)
  Sender: FDA-Public Use
  Company Number: US-MYLANLABS-2021M1044246

PATIENT
  Sex: Female

DRUGS (5)
  1. LOTEPREDNOL ETABONATE [Suspect]
     Active Substance: LOTEPREDNOL ETABONATE
     Indication: IRIDOCYCLITIS
     Dosage: ADMINISTERED FOUR TIMES A DAY IN BOTH EYES; SCHEDULED FOR 1 MONTH
     Route: 061
  2. BRIMONIDINE TARTRATE W/DORZOLAMIDE/TIMOLOL MA [Suspect]
     Active Substance: BRIMONIDINE TARTRATE\DORZOLAMIDE HYDROCHLORIDE\TIMOLOL MALEATE
     Indication: INTRAOCULAR PRESSURE INCREASED
     Dosage: ADMINISTERED TWICE DAILY IN BOTH EYES
     Route: 061
  3. TIMOLOL. [Suspect]
     Active Substance: TIMOLOL
     Indication: INTRAOCULAR PRESSURE INCREASED
     Dosage: ADMINISTERED TWICE DAILY IN RIGHT EYE
     Route: 061
  4. DORZOLAMIDE/TIMOLOL                /01419801/ [Suspect]
     Active Substance: DORZOLAMIDE\TIMOLOL
     Indication: INTRAOCULAR PRESSURE INCREASED
     Dosage: ADMINISTERED TWICE DAILY IN LEFT EYE
     Route: 061
  5. PREDNISOLONE. [Suspect]
     Active Substance: PREDNISOLONE
     Indication: IRIDOCYCLITIS
     Dosage: ADMINISTERED EVERY 3 HRS......
     Route: 061

REACTIONS (1)
  - Drug ineffective [Unknown]
